APPROVED DRUG PRODUCT: CHILDREN'S ALAWAY
Active Ingredient: KETOTIFEN FUMARATE
Strength: EQ 0.025% BASE
Dosage Form/Route: SOLUTION/DROPS;OPHTHALMIC
Application: N021996 | Product #002
Applicant: BAUSCH AND LOMB INC
Approved: Feb 11, 2015 | RLD: Yes | RS: No | Type: OTC